FAERS Safety Report 24874511 (Version 2)
Quarter: 2025Q1

REPORT INFORMATION
  Report Type: Report from Study
  Country: KR (occurrence: KR)
  Receive Date: 20250122
  Receipt Date: 20250220
  Transmission Date: 20250409
  Serious: Yes (Hospitalization)
  Sender: ABBVIE
  Company Number: KR-PFIZER INC-PV202500007689

PATIENT
  Age: 72 Year
  Sex: Male
  Weight: 56 kg

DRUGS (15)
  1. AVIBACTAM SODIUM\CEFTAZIDIME [Suspect]
     Active Substance: AVIBACTAM SODIUM\CEFTAZIDIME
     Indication: Abdominal infection
     Route: 042
     Dates: start: 20240903, end: 20240909
  2. AVELOX [Concomitant]
     Active Substance: MOXIFLOXACIN HYDROCHLORIDE
     Indication: Infection prophylaxis
     Route: 048
     Dates: start: 20240910, end: 20240913
  3. OLIMEL E [Concomitant]
     Active Substance: AMINO ACIDS\DEXTROSE\ELECTROLYTES NOS\SOYBEAN OIL
     Indication: Nutritional supplementation
     Route: 042
     Dates: start: 20240907, end: 20240907
  4. CHENODEOXYCHOLATE MAGNESIUM [Concomitant]
     Indication: Prophylaxis
     Route: 048
     Dates: start: 20240905, end: 20240913
  5. BIOFLOR [Concomitant]
     Indication: Constipation
     Route: 048
     Dates: start: 20240902, end: 20240913
  6. NORZYME [Concomitant]
     Indication: Pancreaticoduodenectomy
     Route: 048
     Dates: start: 20240825
  7. METRONIDAZOLE [Concomitant]
     Active Substance: METRONIDAZOLE
     Indication: Enterobacter infection
     Route: 042
     Dates: start: 20240903, end: 20240908
  8. ACETAMINOPHEN\IBUPROFEN [Concomitant]
     Active Substance: ACETAMINOPHEN\IBUPROFEN
     Indication: Pain
     Route: 042
     Dates: start: 20240906, end: 20240906
  9. TYGACIL [Concomitant]
     Active Substance: TIGECYCLINE
     Indication: Enterobacter infection
     Route: 042
     Dates: start: 20240901, end: 20240903
  10. MEROPENEM [Concomitant]
     Active Substance: MEROPENEM
     Indication: Enterobacter infection
     Route: 042
     Dates: start: 20240830, end: 20240901
  11. NEXIUM [Concomitant]
     Active Substance: ESOMEPRAZOLE MAGNESIUM
     Indication: Prophylaxis
     Route: 048
     Dates: start: 20240825, end: 20240913
  12. CETAMADOL [Concomitant]
     Indication: Pain
     Route: 048
     Dates: start: 20240825, end: 20240913
  13. Sinil m [Concomitant]
     Indication: Prophylaxis
     Route: 048
     Dates: start: 20240902, end: 20241114
  14. GENTAMICIN [Concomitant]
     Active Substance: GENTAMICIN
     Indication: Enterobacter infection
     Route: 042
     Dates: start: 20240830, end: 20240901
  15. Dulackhan easy [Concomitant]
     Indication: Constipation
     Route: 048
     Dates: start: 20240901

REACTIONS (1)
  - Vascular pseudoaneurysm [Recovered/Resolved]

NARRATIVE: CASE EVENT DATE: 20240913
